FAERS Safety Report 24368725 (Version 1)
Quarter: 2024Q3

REPORT INFORMATION
  Report Type: Report from Study
  Country: AR (occurrence: AR)
  Receive Date: 20240926
  Receipt Date: 20240926
  Transmission Date: 20241016
  Serious: Yes (Hospitalization)
  Sender: ABBVIE
  Company Number: AR-ABBVIE-5939247

PATIENT
  Sex: Female

DRUGS (2)
  1. RINVOQ [Suspect]
     Active Substance: UPADACITINIB
     Indication: Psoriatic arthropathy
     Dosage: FORM STRENGTH: 15 MG, DOSE FORM: MODIFIED-RELEASE FILM-COATED TABLET
     Route: 048
     Dates: start: 20230601
  2. METHOTREXATE [Concomitant]
     Active Substance: METHOTREXATE
     Indication: Product used for unknown indication
     Dosage: ARTRAIR (METHOTREXATE), FORM STRENGTH: 10 MG
     Route: 048

REACTIONS (3)
  - Urinary tract infection [Unknown]
  - Bronchitis [Unknown]
  - Kidney infection [Unknown]
